FAERS Safety Report 20935322 (Version 7)
Quarter: 2022Q3

REPORT INFORMATION
  Report Type: Report from Study
  Country: GR (occurrence: GR)
  Receive Date: 20220609
  Receipt Date: 20220825
  Transmission Date: 20221026
  Serious: Yes (Death, Hospitalization, Other)
  Sender: FDA-Public Use
  Company Number: GR-ABBVIE-22K-066-4423053-00

PATIENT
  Age: 66 Year
  Sex: Male
  Weight: 74 kg

DRUGS (3)
  1. CARBIDOPA\LEVODOPA [Suspect]
     Active Substance: CARBIDOPA\LEVODOPA
     Indication: Parkinson^s disease
     Dosage: MORNING DOSE: 10 ML; CONTINUOUS RATE: 5 ML/H; EXTRA DOSE: 1 ML
     Route: 050
     Dates: start: 20210921
  2. CARBIDOPA\LEVODOPA [Suspect]
     Active Substance: CARBIDOPA\LEVODOPA
     Dosage: MORNING DOSE: 10 ML; CONTINUOUS RATE: 5 ML/H; EXTRA DOSE: 1 ML
     Route: 050
  3. CARBIDOPA\LEVODOPA [Suspect]
     Active Substance: CARBIDOPA\LEVODOPA
     Dosage: MORNING DOSE: 10 ML; CONTINUOUS RATE: 5 ML/H; EXTRA DOSE: 1 ML
     Route: 050

REACTIONS (11)
  - Death [Fatal]
  - Aspiration [Not Recovered/Not Resolved]
  - Oxygen saturation decreased [Unknown]
  - Urinary tract infection [Unknown]
  - Pneumonia aspiration [Not Recovered/Not Resolved]
  - Tracheostomy [Not Recovered/Not Resolved]
  - Parenteral nutrition [Not Recovered/Not Resolved]
  - Respiratory tract infection [Unknown]
  - Flatulence [Unknown]
  - Stoma site discharge [Unknown]
  - Stoma site irritation [Unknown]

NARRATIVE: CASE EVENT DATE: 20220728
